FAERS Safety Report 9727464 (Version 3)
Quarter: 2013Q4

REPORT INFORMATION
  Report Type: Spontaneous
  Country: DE (occurrence: DE)
  Receive Date: 20131203
  Receipt Date: 20131209
  Transmission Date: 20140711
  Serious: Yes (Life-Threatening, Hospitalization)
  Sender: FDA-Public Use
  Company Number: DE-TEVA-2006R114360

PATIENT
  Age: 40 Year
  Sex: Male

DRUGS (5)
  1. RISPERIDONE [Suspect]
     Indication: SCHIZOPHRENIA
     Dosage: 8 MILLIGRAM DAILY; 8 MG DAILY
     Route: 065
  2. RISPERIDONE [Interacting]
     Dosage: 3 MILLIGRAM DAILY;
     Route: 065
  3. MIRTAZAPINE [Interacting]
     Indication: DEPRESSION
     Dosage: 45 MILLIGRAM DAILY;
     Route: 065
  4. MIRTAZAPINE [Interacting]
     Dosage: 60 MILLIGRAM DAILY; 60 MG
     Route: 065
  5. BIPERIDEN [Concomitant]
     Indication: EXTRAPYRAMIDAL DISORDER
     Dosage: 2 MILLIGRAM DAILY; 2 MG DAILY
     Route: 065

REACTIONS (4)
  - Hypokinesia [Unknown]
  - Drug interaction [Recovered/Resolved]
  - Pulmonary embolism [Recovered/Resolved]
  - Rhabdomyolysis [Recovered/Resolved]
